FAERS Safety Report 5859108-6 (Version None)
Quarter: 2008Q3

REPORT INFORMATION
  Report Type: 
  Country: None (occurrence: None)
  Receive Date: 20080827
  Receipt Date: 20080820
  Transmission Date: 20090109
  Serious: Yes (Other)
  Sender: FDA-Public Use
  Company Number: PHHY2008JP12551

PATIENT
  Sex: Male
  Weight: 63 kg

DRUGS (6)
  1. DIOVAN [Suspect]
     Indication: HYPERTENSION
     Dosage: 80 MG, QD
     Route: 048
     Dates: start: 20080404, end: 20080427
  2. EVIPROSTAT [Concomitant]
     Indication: BENIGN PROSTATIC HYPERPLASIA
  3. MUCOSTA [Concomitant]
     Indication: GASTRITIS
  4. CYANOCOBALAMIN [Concomitant]
     Indication: BACK PAIN
  5. RINLAXER [Concomitant]
     Indication: BACK PAIN
  6. DEPAS [Concomitant]
     Indication: INSOMNIA

REACTIONS (1)
  - ERYTHEMA MULTIFORME [None]
